FAERS Safety Report 16529612 (Version 1)
Quarter: 2019Q3

REPORT INFORMATION
  Report Type: Report from Study
  Country: CA (occurrence: CA)
  Receive Date: 20190703
  Receipt Date: 20190703
  Transmission Date: 20191004
  Serious: Yes (Other)
  Sender: FDA-Public Use
  Company Number: CA-BEH-2019103660

PATIENT
  Age: 70 Year
  Sex: Male

DRUGS (7)
  1. BERINERT [Suspect]
     Active Substance: HUMAN C1-ESTERASE INHIBITOR
     Indication: PROPHYLAXIS
  2. BERINERT [Suspect]
     Active Substance: HUMAN C1-ESTERASE INHIBITOR
     Indication: HEREDITARY ANGIOEDEMA
     Dosage: 3000 INTERNATIONAL UNIT, BIW
     Route: 042
     Dates: start: 20141128
  3. BERINERT [Suspect]
     Active Substance: HUMAN C1-ESTERASE INHIBITOR
     Indication: HEREDITARY ANGIOEDEMA
     Dosage: 3000 INTERNATIONAL UNIT, BIW
     Route: 042
     Dates: start: 20141128
  4. ASPIRINE [Concomitant]
     Active Substance: ASPIRIN
  5. BERINERT [Suspect]
     Active Substance: HUMAN C1-ESTERASE INHIBITOR
     Indication: PROPHYLAXIS
  6. TAMSULOSIN [Concomitant]
     Active Substance: TAMSULOSIN
  7. ELIQUIS [Concomitant]
     Active Substance: APIXABAN

REACTIONS (5)
  - Body temperature abnormal [Not Recovered/Not Resolved]
  - No adverse event [Unknown]
  - Product use in unapproved indication [Unknown]
  - Hereditary angioedema [Recovered/Resolved]
  - Feeling cold [Not Recovered/Not Resolved]

NARRATIVE: CASE EVENT DATE: 201906
